FAERS Safety Report 17566713 (Version 1)
Quarter: 2020Q1

REPORT INFORMATION
  Report Type: Report from Study
  Country: IT (occurrence: IT)
  Receive Date: 20200320
  Receipt Date: 20200320
  Transmission Date: 20200409
  Serious: Yes (Other)
  Sender: FDA-Public Use
  Company Number: IT-ROCHE-2566354

PATIENT

DRUGS (13)
  1. RIBAVIRIN. [Suspect]
     Active Substance: RIBAVIRIN
     Indication: CHRONIC HEPATITIS C
     Route: 065
  2. ELBASVIR. [Suspect]
     Active Substance: ELBASVIR
     Indication: CHRONIC HEPATITIS C
     Route: 065
  3. PARITAPREVIR [Suspect]
     Active Substance: PARITAPREVIR
     Indication: CHRONIC HEPATITIS C
     Route: 065
  4. DACLATASVIR. [Suspect]
     Active Substance: DACLATASVIR
     Indication: CHRONIC HEPATITIS C
     Route: 065
  5. GRAZOPREVIR. [Suspect]
     Active Substance: GRAZOPREVIR
     Indication: CHRONIC HEPATITIS C
     Route: 065
  6. SIMEPREVIR [Suspect]
     Active Substance: SIMEPREVIR
     Indication: CHRONIC HEPATITIS C
     Route: 065
  7. OMBITASVIR [Suspect]
     Active Substance: OMBITASVIR
     Indication: CHRONIC HEPATITIS C
     Route: 065
  8. VELPATASVIR [Suspect]
     Active Substance: VELPATASVIR
     Indication: CHRONIC HEPATITIS C
     Route: 065
  9. PIBRENTASVIR [Suspect]
     Active Substance: PIBRENTASVIR
     Indication: CHRONIC HEPATITIS C
     Route: 065
  10. LEDIPASVIR [Suspect]
     Active Substance: LEDIPASVIR
     Indication: CHRONIC HEPATITIS C
     Route: 065
  11. GLECAPREVIR [Suspect]
     Active Substance: GLECAPREVIR
     Indication: CHRONIC HEPATITIS C
     Route: 065
  12. RITONAVIR. [Suspect]
     Active Substance: RITONAVIR
     Indication: CHRONIC HEPATITIS C
     Route: 065
  13. SOFOSBUVIR [Suspect]
     Active Substance: SOFOSBUVIR
     Indication: CHRONIC HEPATITIS C
     Route: 065

REACTIONS (12)
  - Thrombocytopenia [Unknown]
  - Hypotension [Unknown]
  - Anxiety [Unknown]
  - Hypertensive crisis [Unknown]
  - Insomnia [Unknown]
  - Agitation [Unknown]
  - Abdominal pain [Unknown]
  - Acute hepatic failure [Unknown]
  - Renal disorder [Unknown]
  - Lymphoma [Unknown]
  - Rash [Unknown]
  - Pruritus [Unknown]
